FAERS Safety Report 6732095-4 (Version None)
Quarter: 2010Q2

REPORT INFORMATION
  Report Type: 
  Country: None (occurrence: None)
  Receive Date: 20100519
  Receipt Date: 20100517
  Transmission Date: 20101027
  Serious: Yes (Other)
  Sender: FDA-Public Use
  Company Number: US-BRISTOL-MYERS SQUIBB COMPANY-15108616

PATIENT
  Age: 42 Year
  Sex: Male

DRUGS (5)
  1. KENALOG-40 [Suspect]
     Indication: HYPERSENSITIVITY
     Dates: start: 20100507
  2. UROXATRAL [Concomitant]
  3. IMURAN [Concomitant]
  4. PAXIL [Concomitant]
  5. BUSPAR [Concomitant]

REACTIONS (5)
  - CHEST DISCOMFORT [None]
  - HEADACHE [None]
  - MUSCULOSKELETAL PAIN [None]
  - SWOLLEN TONGUE [None]
  - THROAT TIGHTNESS [None]
